APPROVED DRUG PRODUCT: NALLPEN
Active Ingredient: NAFCILLIN SODIUM
Strength: EQ 2GM BASE/VIAL
Dosage Form/Route: INJECTABLE;INJECTION
Application: A062755 | Product #002
Applicant: GLAXOSMITHKLINE
Approved: Dec 19, 1986 | RLD: No | RS: No | Type: DISCN